FAERS Safety Report 16794215 (Version 1)
Quarter: 2019Q3

REPORT INFORMATION
  Report Type: Spontaneous
  Country: US (occurrence: US)
  Receive Date: 20190911
  Receipt Date: 20190911
  Transmission Date: 20191005
  Serious: Yes (Other)
  Sender: FDA-Public Use
  Company Number: US-ALKERMES INC.-ALK-2019-004761

PATIENT
  Age: 51 Year
  Sex: Male
  Weight: 92.97 kg

DRUGS (1)
  1. VIVITROL [Suspect]
     Active Substance: NALTREXONE
     Indication: DRUG DEPENDENCE
     Dosage: 380 MG, QMO
     Route: 030
     Dates: start: 20190606, end: 20190606

REACTIONS (15)
  - Injection site necrosis [Recovered/Resolved]
  - Injection site mass [Recovered/Resolved]
  - Injection site induration [Recovered/Resolved]
  - Dysgeusia [Recovered/Resolved]
  - Injection site discolouration [Recovered/Resolved]
  - Administration site odour [Recovered/Resolved]
  - Injection site macule [Recovered/Resolved]
  - Injection site scab [Recovered/Resolved]
  - Injection site reaction [Not Recovered/Not Resolved]
  - Decreased appetite [Recovered/Resolved]
  - Injection site cellulitis [Not Recovered/Not Resolved]
  - Chromaturia [Not Recovered/Not Resolved]
  - Injection site indentation [Not Recovered/Not Resolved]
  - Abdominal pain upper [Recovered/Resolved]
  - Fatigue [Recovered/Resolved]

NARRATIVE: CASE EVENT DATE: 2019
